FAERS Safety Report 9302656 (Version 1)
Quarter: 2013Q2

REPORT INFORMATION
  Report Type: Spontaneous
  Country: US (occurrence: None)
  Receive Date: 20130517
  Receipt Date: 20130517
  Transmission Date: 20140414
  Serious: Yes (Hospitalization)
  Sender: FDA-Public Use
  Company Number: QSC-2013-0128

PATIENT
  Age: 59 Year
  Sex: Female
  Weight: 71.7 kg

DRUGS (13)
  1. H.P. ACTHAR GEL (ADRENOCORTICOTROPIC HORMONE) GEL FOR INJECTION, 80U/ML [Suspect]
     Dosage: 80 UNITS
     Route: 058
     Dates: start: 201301, end: 20130322
  2. AMLODIPINE (AMLODIPINE) [Concomitant]
  3. COPAXONE (GLATIRAMER ACETATE) [Concomitant]
  4. DOXEPIN [Concomitant]
  5. OMEPRAZOLE [Concomitant]
  6. ESTROGEN (ESTRADIOL) [Concomitant]
  7. LISINOPRIL [Concomitant]
  8. METOPROLOL [Concomitant]
  9. RANITIDINE (RANITIDINE) [Concomitant]
  10. SIMVASTATIN [Concomitant]
  11. WARFARIN [Concomitant]
  12. PROGRAF (TACROLIMUS) [Concomitant]
  13. PREDNISONE [Concomitant]

REACTIONS (11)
  - Atrial fibrillation [None]
  - Palpitations [None]
  - Heart rate increased [None]
  - Dyspnoea exertional [None]
  - Coronary artery embolism [None]
  - Amaurosis fugax [None]
  - Eye haemorrhage [None]
  - Sleep apnoea syndrome [None]
  - Snoring [None]
  - Infusion site infection [None]
  - Erythema [None]
